FAERS Safety Report 25378544 (Version 1)
Quarter: 2025Q2

REPORT INFORMATION
  Report Type: Report from Study
  Country: US (occurrence: US)
  Receive Date: 20250530
  Receipt Date: 20250530
  Transmission Date: 20250716
  Serious: Yes (Other)
  Sender: BLUEBIRD BIO
  Company Number: US-BLUEBIRD BIO-US-BBB-25-00034

PATIENT
  Age: 12 Year
  Sex: Male
  Weight: 39.2 kg

DRUGS (6)
  1. ZYNTEGLO [Suspect]
     Active Substance: BETIBEGLOGENE AUTOTEMCEL
     Indication: Thalassaemia beta
     Route: 042
     Dates: start: 20250311, end: 20250311
  2. GRANULOCYTE COLONY-STIMULATING FACTOR NOS [Concomitant]
     Active Substance: GRANULOCYTE COLONY-STIMULATING FACTOR NOS
     Indication: Haematopoietic stem cell mobilisation
     Dates: start: 20241102, end: 20241105
  3. PLERIXAFOR [Concomitant]
     Active Substance: PLERIXAFOR
     Indication: Haematopoietic stem cell mobilisation
     Dates: start: 20241106, end: 20241106
  4. BUSULFAN [Concomitant]
     Active Substance: BUSULFAN
     Indication: Bone marrow conditioning regimen
     Dates: start: 20250305, end: 20250306
  5. BUSULFAN [Concomitant]
     Active Substance: BUSULFAN
     Dates: start: 20250307, end: 20250308
  6. ACTIGALL [Concomitant]
     Active Substance: URSODIOL
     Indication: Sickle cell anaemia with crisis
     Dosage: 300 MILLIGRAM, BID
     Route: 048
     Dates: start: 20250304, end: 20250326

REACTIONS (1)
  - Venoocclusive liver disease [Recovered/Resolved]

NARRATIVE: CASE EVENT DATE: 20250326
